FAERS Safety Report 8444186-0 (Version None)
Quarter: 2012Q2

REPORT INFORMATION
  Report Type: 
  Country: None (occurrence: None)
  Receive Date: 20120323
  Receipt Date: 20110708
  Transmission Date: 20120825
  Serious: Yes (Hospitalization, Disabling)
  Sender: FDA-Public Use
  Company Number: 163-21880-11052857

PATIENT
  Age: 75 Year
  Sex: Male

DRUGS (4)
  1. REVLIMID [Suspect]
     Dosage: 25 MG, 1 IN 1 D, PO; 14 MG, 1 IN 1 D, PO; 10 MG, DAILY DAYS 1-21, PO
     Route: 048
     Dates: start: 20110126
  2. REVLIMID [Suspect]
     Dosage: 25 MG, 1 IN 1 D, PO; 14 MG, 1 IN 1 D, PO; 10 MG, DAILY DAYS 1-21, PO
     Route: 048
     Dates: start: 20101023
  3. REVLIMID [Suspect]
     Dosage: 25 MG, 1 IN 1 D, PO; 14 MG, 1 IN 1 D, PO; 10 MG, DAILY DAYS 1-21, PO
     Route: 048
     Dates: start: 20110201, end: 20110506
  4. DEXAMETHASONE MYELOMA [Concomitant]

REACTIONS (1)
  - NEUTROPENIA [None]
